FAERS Safety Report 8915412 (Version 1)
Quarter: 2012Q4

REPORT INFORMATION
  Report Type: 
  Country: CH (occurrence: SZ)
  Receive Date: 20121119
  Receipt Date: 20121119
  Transmission Date: 20130627
  Serious: Yes (Death, Life-Threatening)
  Sender: FDA-Public Use
  Company Number: SZ-ASTRAZENECA-2012SE86594

PATIENT
  Age: 94 Year
  Sex: Female

DRUGS (15)
  1. NEXIUM [Suspect]
     Route: 048
     Dates: start: 2011
  2. PLAVIX [Suspect]
     Route: 048
     Dates: start: 2011
  3. AMOXICILLIN\CLAVULANATE POTASSIUM [Suspect]
     Indication: BRONCHOPNEUMONIA
     Route: 041
     Dates: start: 20120515, end: 20120519
  4. METOLAZONE [Concomitant]
     Indication: CARDIAC FAILURE
     Dates: start: 20120522, end: 20120530
  5. LASIX [Concomitant]
     Indication: CARDIAC FAILURE
     Route: 041
     Dates: start: 20120514
  6. BELOC ZOK [Concomitant]
  7. TORASEMID [Concomitant]
     Route: 048
  8. NITRODERM MATRIX [Concomitant]
     Route: 003
  9. IMOVANE [Concomitant]
     Route: 048
  10. CETIRIZINE [Concomitant]
     Route: 048
     Dates: start: 20120519
  11. TEMESTA [Concomitant]
  12. IMPORTAL [Concomitant]
  13. DAFALGAN [Concomitant]
  14. PREDNISONE [Concomitant]
     Dosage: 30 MG ONE PER ONE TOTAL
     Dates: start: 20120519, end: 20120519
  15. SOUS POMPE [Concomitant]

REACTIONS (4)
  - Respiratory failure [Fatal]
  - Myocardial ischaemia [Fatal]
  - Renal failure acute [Fatal]
  - Rash maculo-papular [None]
